FAERS Safety Report 21274997 (Version 1)
Quarter: 2022Q3

REPORT INFORMATION
  Report Type: Spontaneous
  Country: US (occurrence: US)
  Receive Date: 20220831
  Receipt Date: 20220831
  Transmission Date: 20221027
  Serious: No
  Sender: FDA-Public Use
  Company Number: US-BIOMARINAP-US-2022-145228

PATIENT

DRUGS (2)
  1. VOXZOGO [Suspect]
     Active Substance: VOSORITIDE
     Indication: Product used for unknown indication
     Dosage: 0.56 MILLIGRAM
     Route: 058
  2. VOXZOGO [Suspect]
     Active Substance: VOSORITIDE
     Dosage: 0.4 MILLIGRAM
     Route: 058

REACTIONS (1)
  - Injection site pain [Unknown]
